FAERS Safety Report 8997755 (Version 1)
Quarter: 2013Q1

REPORT INFORMATION
  Report Type: Spontaneous
  Country: GB (occurrence: GB)
  Receive Date: 20130104
  Receipt Date: 20130104
  Transmission Date: 20140127
  Serious: Yes (Disabling)
  Sender: FDA-Public Use
  Company Number: PHHY2012GB122045

PATIENT
  Age: 60 Year
  Sex: Female
  Weight: 65.31 kg

DRUGS (2)
  1. AMOXICILLIN [Suspect]
     Dosage: 250 G, UNK
     Dates: start: 20101004
  2. CINNARIZINE\DIMENHYDRINATE [Suspect]
     Indication: DIZZINESS
     Dosage: 2040 MG, UNK
     Dates: start: 20101004

REACTIONS (3)
  - Hypoacusis [Unknown]
  - Tinnitus [Not Recovered/Not Resolved]
  - Eye pain [Recovered/Resolved]
